FAERS Safety Report 17019303 (Version 1)
Quarter: 2019Q4

REPORT INFORMATION
  Report Type: Spontaneous
  Country: US (occurrence: US)
  Receive Date: 20191112
  Receipt Date: 20191112
  Transmission Date: 20200122
  Serious: No
  Sender: FDA-Public Use
  Company Number: US-CELGENEUS-USA-20191101287

PATIENT
  Sex: Female

DRUGS (4)
  1. OTEZLA [Suspect]
     Active Substance: APREMILAST
     Indication: PSORIATIC ARTHROPATHY
     Dosage: 60 MILLIGRAM
     Route: 048
     Dates: start: 20190716
  2. OTEZLA [Suspect]
     Active Substance: APREMILAST
     Indication: SUBCUTANEOUS ABSCESS
  3. OTEZLA [Suspect]
     Active Substance: APREMILAST
     Indication: POLYNEUROPATHY IDIOPATHIC PROGRESSIVE
  4. OTEZLA [Suspect]
     Active Substance: APREMILAST
     Indication: DRY EYE

REACTIONS (3)
  - Skin lesion [Unknown]
  - Urinary tract infection [Recovered/Resolved]
  - Sinus disorder [Unknown]

NARRATIVE: CASE EVENT DATE: 2019
